FAERS Safety Report 13459759 (Version 2)
Quarter: 2017Q3

REPORT INFORMATION
  Report Type: Report from Study
  Country: US (occurrence: US)
  Receive Date: 20170420
  Receipt Date: 20170713
  Transmission Date: 20171127
  Serious: Yes (Other)
  Sender: FDA-Public Use
  Company Number: US-SUN PHARMACEUTICAL INDUSTRIES LTD-2017US-138666

PATIENT

DRUGS (7)
  1. PREDNISONE. [Suspect]
     Active Substance: PREDNISONE
     Indication: ACUTE MYELOID LEUKAEMIA
     Route: 064
  2. TETRACYCLINE [Suspect]
     Active Substance: TETRACYCLINE
     Indication: ACUTE MYELOID LEUKAEMIA
     Route: 065
  3. OXACILLIN [Suspect]
     Active Substance: OXACILLIN SODIUM
     Indication: ACUTE MYELOID LEUKAEMIA
     Route: 064
  4. ERYTHROMYCIN. [Suspect]
     Active Substance: ERYTHROMYCIN
     Indication: ACUTE MYELOID LEUKAEMIA
     Route: 064
  5. METHYL-GUANYLHYDRAZONE [Suspect]
     Active Substance: MITOGUAZONE
     Indication: ACUTE MYELOID LEUKAEMIA
     Route: 064
  6. PENICLLIN G POTASSIUM [Suspect]
     Active Substance: PENICILLIN G POTASSIUM
     Indication: ACUTE MYELOID LEUKAEMIA
     Route: 064
  7. 6-MERCAPTOPURINE [Suspect]
     Active Substance: MERCAPTOPURINE
     Indication: ACUTE MYELOID LEUKAEMIA
     Route: 064

REACTIONS (3)
  - Foetal exposure during pregnancy [Unknown]
  - Premature baby [Unknown]
  - Maternal drugs affecting foetus [None]
